FAERS Safety Report 17517642 (Version 1)
Quarter: 2020Q1

REPORT INFORMATION
  Report Type: Spontaneous
  Country: US (occurrence: US)
  Receive Date: 20200309
  Receipt Date: 20200309
  Transmission Date: 20200409
  Serious: Yes (Hospitalization, Other)
  Sender: FDA-Public Use
  Company Number: None

PATIENT
  Age: 68 Year
  Sex: Female
  Weight: 58.95 kg

DRUGS (10)
  1. MAGNESIUM ASPARTATE 65 MG [Concomitant]
  2. VITAMIN D3 1000 IU [Concomitant]
  3. AMBIEN [Concomitant]
     Active Substance: ZOLPIDEM TARTRATE
  4. AMLODIPINE 2.5 MG [Concomitant]
     Active Substance: AMLODIPINE BESYLATE
  5. BIOTIN 5 MG [Concomitant]
  6. PAROXETINE 10 MG [Concomitant]
     Active Substance: PAROXETINE
  7. PIQRAY [Suspect]
     Active Substance: ALPELISIB
     Indication: BREAST CANCER
     Route: 048
  8. POTASSIUM CHLORIDE ER 10 MEQ [Concomitant]
  9. CALTRATE [Concomitant]
     Active Substance: CALCIUM CARBONATE
  10. XGEVA [Concomitant]
     Active Substance: DENOSUMAB

REACTIONS (2)
  - Lung neoplasm [None]
  - Disease progression [None]

NARRATIVE: CASE EVENT DATE: 20200221
